FAERS Safety Report 20655058 (Version 1)
Quarter: 2022Q1

REPORT INFORMATION
  Report Type: Spontaneous
  Country: DK (occurrence: DK)
  Receive Date: 20220330
  Receipt Date: 20220330
  Transmission Date: 20220423
  Serious: Yes (Other)
  Sender: FDA-Public Use
  Company Number: DK-OTSUKA-2022_016872

PATIENT
  Sex: Male
  Weight: 58 kg

DRUGS (3)
  1. ABILIFY [Suspect]
     Active Substance: ARIPIPRAZOLE
     Indication: Depression
     Dosage: UNK
     Route: 065
     Dates: start: 2005
  2. ABILIFY [Suspect]
     Active Substance: ARIPIPRAZOLE
     Indication: Psychotic disorder
     Dosage: 30 MG
     Route: 065
     Dates: end: 201009
  3. ABILIFY [Suspect]
     Active Substance: ARIPIPRAZOLE
     Indication: Energy increased

REACTIONS (7)
  - Chemical poisoning [Unknown]
  - Type 1 diabetes mellitus [Unknown]
  - Seizure [Unknown]
  - Hunger [Unknown]
  - Thirst [Unknown]
  - Weight decreased [Unknown]
  - Product use in unapproved indication [Unknown]

NARRATIVE: CASE EVENT DATE: 20070901
